FAERS Safety Report 6319781-5 (Version None)
Quarter: 2009Q3

REPORT INFORMATION
  Report Type: 
  Country: None (occurrence: None)
  Receive Date: 20090822
  Receipt Date: 20080924
  Transmission Date: 20100115
  Serious: No
  Sender: FDA-Public Use
  Company Number: US-ABBOTT-08P-163-0478186-00

PATIENT
  Sex: Male

DRUGS (2)
  1. NIASPAN [Suspect]
     Indication: DRUG USE FOR UNKNOWN INDICATION
     Dates: start: 20080824, end: 20080921
  2. NIASPAN [Suspect]
     Dates: start: 20080921

REACTIONS (2)
  - FEELING HOT [None]
  - HYPERHIDROSIS [None]
